FAERS Safety Report 25235328 (Version 1)
Quarter: 2025Q2

REPORT INFORMATION
  Report Type: Spontaneous
  Country: US (occurrence: US)
  Receive Date: 20250424
  Receipt Date: 20250424
  Transmission Date: 20250717
  Serious: No
  Sender: TEVA
  Company Number: US-TEVA-VS-3321835

PATIENT
  Age: 42 Year
  Sex: Female

DRUGS (1)
  1. BALZIVA [Suspect]
     Active Substance: ETHINYL ESTRADIOL\NORETHINDRONE
     Indication: Product used for unknown indication
     Route: 048
     Dates: start: 202412

REACTIONS (3)
  - Intermenstrual bleeding [Unknown]
  - Treatment noncompliance [Unknown]
  - Menstruation irregular [Unknown]
